FAERS Safety Report 8159833 (Version 2)
Quarter: 2012Q4

REPORT INFORMATION
  Report Type: Report from Study
  Country: US (occurrence: US)
  Receive Date: 20110928
  Receipt Date: 20121024
  Transmission Date: 20130627
  Serious: Yes (Hospitalization)
  Sender: FDA-Public Use
  Company Number: US-ELI_LILLY_AND_COMPANY-US201109006210

PATIENT
  Age: 74 Year
  Sex: Male
  Weight: 83.45 kg

DRUGS (13)
  1. GEMCITABINE HYDROCHLORIDE [Suspect]
     Indication: PANCREATIC CARCINOMA METASTATIC
     Dosage: 2140 mg, weekly (1/W)
     Route: 042
     Dates: start: 20110627, end: 20110627
  2. GEMCITABINE HYDROCHLORIDE [Suspect]
     Dosage: 1598 mg, weekly (1/W)
     Route: 042
     Dates: start: 20110711, end: 20120711
  3. ONDANSETRON [Concomitant]
     Dosage: UNK
     Dates: start: 20110613
  4. ATORVASTATIN [Concomitant]
     Dosage: UNK
  5. INSULIN GLARGINE [Concomitant]
  6. INSULIN LISPRO [Concomitant]
  7. LEVOTHYROXINE [Concomitant]
     Dosage: UNK
  8. LISINOPRIL [Concomitant]
     Dosage: UNK
  9. MULTIVITAMIN [Concomitant]
  10. OXYCODONE [Concomitant]
     Dosage: UNK
  11. SENNA ALEXANDRINA [Concomitant]
     Dosage: UNK
  12. TADALAFIL [Concomitant]
     Dosage: UNK
  13. TAMSULOSIN [Concomitant]
     Dosage: UNK

REACTIONS (3)
  - Nausea [Recovered/Resolved]
  - Nausea [Recovered/Resolved]
  - Vomiting [Recovered/Resolved]
